FAERS Safety Report 20289056 (Version 3)
Quarter: 2022Q1

REPORT INFORMATION
  Report Type: Report from Study
  Country: DE (occurrence: DE)
  Receive Date: 20220104
  Receipt Date: 20220210
  Transmission Date: 20220423
  Serious: Yes (Death, Hospitalization, Other)
  Sender: FDA-Public Use
  Company Number: DE-ABBVIE-21K-062-4218762-00

PATIENT
  Sex: Female
  Weight: 80 kg

DRUGS (16)
  1. CARBIDOPA\LEVODOPA [Suspect]
     Active Substance: CARBIDOPA\LEVODOPA
     Indication: Parkinson^s disease
     Dosage: MD: 8.0 ML; CRD: 3.6ML/H; ED: 1.5ML
     Route: 050
     Dates: start: 20190314, end: 202112
  2. CARBIDOPA\LEVODOPA [Suspect]
     Active Substance: CARBIDOPA\LEVODOPA
  3. CALCIUM [Concomitant]
     Active Substance: CALCIUM
     Indication: Product used for unknown indication
  4. EUTHYROX [Concomitant]
     Active Substance: LEVOTHYROXINE SODIUM
     Indication: Product used for unknown indication
  5. FOLIC ACID [Concomitant]
     Active Substance: FOLIC ACID
     Indication: Product used for unknown indication
  6. HYALURONATE SODIUM [Concomitant]
     Active Substance: HYALURONATE SODIUM
     Indication: Product used for unknown indication
  7. IBUPROFEN [Concomitant]
     Active Substance: IBUPROFEN
     Indication: Product used for unknown indication
  8. LACTULOSE [Concomitant]
     Active Substance: LACTULOSE
     Indication: Product used for unknown indication
  9. LEVOTHYROXINE SODIUM [Concomitant]
     Active Substance: LEVOTHYROXINE SODIUM
     Indication: Product used for unknown indication
  10. ACETAMINOPHEN [Concomitant]
     Active Substance: ACETAMINOPHEN
     Indication: Product used for unknown indication
  11. PANTOPRAZOLE SODIUM [Concomitant]
     Active Substance: PANTOPRAZOLE SODIUM
     Indication: Product used for unknown indication
  12. SALFLUTIN [Concomitant]
     Indication: Product used for unknown indication
  13. SERTRALINE HYDROCHLORIDE [Concomitant]
     Active Substance: SERTRALINE HYDROCHLORIDE
     Indication: Depression
     Route: 048
     Dates: start: 201903
  14. LEVODOPA [Concomitant]
     Active Substance: LEVODOPA
     Indication: Product used for unknown indication
  15. BENSERAZIDE HYDROCHLORIDE\LEVODOPA [Concomitant]
     Active Substance: BENSERAZIDE HYDROCHLORIDE\LEVODOPA
     Indication: Product used for unknown indication
  16. FOLIC ACID [Concomitant]
     Active Substance: FOLIC ACID
     Indication: Product used for unknown indication

REACTIONS (29)
  - Partial seizures [Fatal]
  - Disturbance in attention [Fatal]
  - Dysphagia [Fatal]
  - General physical health deterioration [Fatal]
  - Hiatus hernia [Unknown]
  - Gastric mucosa erythema [Unknown]
  - Meningioma [Unknown]
  - Acute kidney injury [Unknown]
  - Epilepsy [Unknown]
  - Central nervous system lesion [Unknown]
  - Hypocalcaemia [Unknown]
  - Inflammatory marker increased [Unknown]
  - Pyrexia [Unknown]
  - Melaena [Unknown]
  - Microangiopathy [Unknown]
  - Agitation [Unknown]
  - Large intestine polyp [Unknown]
  - Lipoma [Unknown]
  - Cardiomegaly [Unknown]
  - On and off phenomenon [Unknown]
  - Major depression [Unknown]
  - Patient dissatisfaction with treatment [Unknown]
  - Mobility decreased [Unknown]
  - Confusional state [Unknown]
  - Therapeutic product effect variable [Unknown]
  - Nitrite urine present [Unknown]
  - Dehydration [Unknown]
  - Hypernatraemia [Unknown]
  - Somnolence [Unknown]

NARRATIVE: CASE EVENT DATE: 20210101
